FAERS Safety Report 6749449-2 (Version None)
Quarter: 2010Q2

REPORT INFORMATION
  Report Type: 
  Country: None (occurrence: None)
  Receive Date: 20100601
  Receipt Date: 20100517
  Transmission Date: 20101027
  Serious: Yes (Other)
  Sender: FDA-Public Use
  Company Number: BG-PFIZER INC-2010061680

PATIENT
  Age: 56 Year
  Sex: Male

DRUGS (1)
  1. PENICILLIN G PROCAINE [Suspect]
     Dosage: 4 X 2000000 UI/DAILY
     Route: 042

REACTIONS (2)
  - HOIGNE'S SYNDROME [None]
  - JARISCH-HERXHEIMER REACTION [None]
